FAERS Safety Report 4447145-8 (Version None)
Quarter: 2004Q3

REPORT INFORMATION
  Report Type: 
  Country: None (occurrence: None)
  Receive Date: 20040813
  Receipt Date: 20040604
  Transmission Date: 20050211
  Serious: No
  Sender: FDA-Public Use
  Company Number: S04-USA-03630-01

PATIENT
  Age: 74 Year
  Sex: Female

DRUGS (7)
  1. NAMENDA [Suspect]
     Indication: DEMENTIA ALZHEIMER'S TYPE
     Dosage: 5 MG QD PO
     Route: 048
     Dates: start: 20040515, end: 20040521
  2. NAMENDA [Suspect]
     Indication: DEMENTIA ALZHEIMER'S TYPE
     Dosage: 10 MG QD PO
     Route: 048
     Dates: start: 20040522, end: 20040528
  3. ARICEPT [Concomitant]
  4. HERBAL SUPPLEMETNS [Concomitant]
  5. CLONIDINE HCL [Concomitant]
  6. DETROL [Concomitant]
  7. RISPERDAL [Concomitant]

REACTIONS (4)
  - ASTHENIA [None]
  - COORDINATION ABNORMAL [None]
  - DYSKINESIA [None]
  - SOMNOLENCE [None]
